FAERS Safety Report 9693069 (Version 1)
Quarter: 2013Q4

REPORT INFORMATION
  Report Type: Spontaneous
  Country: US (occurrence: US)
  Receive Date: 20131118
  Receipt Date: 20131118
  Transmission Date: 20140711
  Serious: No
  Sender: FDA-Public Use
  Company Number: US-BAYER-2013-139001

PATIENT
  Age: 49 Year
  Sex: Female

DRUGS (3)
  1. BETASERON [Suspect]
  2. AVONEX [Suspect]
  3. COPAXONE [Suspect]

REACTIONS (2)
  - Influenza like illness [None]
  - Injection site reaction [None]
